FAERS Safety Report 9979661 (Version 2)
Quarter: 2014Q1

REPORT INFORMATION
  Report Type: Report from Study
  Country: US (occurrence: US)
  Receive Date: 20140306
  Receipt Date: 20140306
  Transmission Date: 20141002
  Serious: No
  Sender: FDA-Public Use
  Company Number: US-ABBVIE-13P-163-1147805-00

PATIENT
  Age: 36 Year
  Sex: Female

DRUGS (9)
  1. HUMIRA [Suspect]
     Indication: ANKYLOSING SPONDYLITIS
     Dates: start: 201102, end: 201205
  2. HUMIRA [Suspect]
     Dates: start: 201205
  3. ALBUTEROL [Concomitant]
     Indication: ASTHMA
     Route: 055
  4. EPINEPHRINE [Concomitant]
     Indication: HYPERSENSITIVITY
  5. EPINEPHRINE [Concomitant]
     Indication: MULTIPLE ALLERGIES
  6. NORCO [Concomitant]
     Indication: PAIN
     Dosage: 10/324
  7. NORCO [Concomitant]
     Indication: OSTEOARTHRITIS
  8. FLEXERIL [Concomitant]
     Indication: POST LAMINECTOMY SYNDROME
  9. CARAFATE [Concomitant]
     Indication: IRRITABLE BOWEL SYNDROME
     Dosage: 1 GRAM DAILY

REACTIONS (8)
  - Grip strength decreased [Unknown]
  - Arrhythmia [Unknown]
  - Ankylosing spondylitis [Unknown]
  - Drug effect incomplete [Unknown]
  - Arthralgia [Unknown]
  - Back pain [Unknown]
  - Local swelling [Unknown]
  - Fatigue [Unknown]
